FAERS Safety Report 7846157-1 (Version None)
Quarter: 2011Q4

REPORT INFORMATION
  Report Type: 
  Country: None (occurrence: None)
  Receive Date: 20111025
  Receipt Date: 20111010
  Transmission Date: 20120403
  Serious: Yes (Other)
  Sender: FDA-Public Use
  Company Number: PL-CELGENEUS-129-21880-11101197

PATIENT

DRUGS (1)
  1. REVLIMID [Suspect]
     Dosage: 25 MILLIGRAM
     Route: 048

REACTIONS (9)
  - METASTATIC MALIGNANT MELANOMA [None]
  - PANCREATIC CARCINOMA [None]
  - ACUTE MYELOID LEUKAEMIA [None]
  - SQUAMOUS CELL CARCINOMA OF SKIN [None]
  - BASAL CELL CARCINOMA [None]
  - MYELODYSPLASTIC SYNDROME [None]
  - COLON CANCER [None]
  - PROSTATE CANCER [None]
  - NEOPLASM MALIGNANT [None]
